FAERS Safety Report 12310827 (Version 1)
Quarter: 2016Q2

REPORT INFORMATION
  Report Type: Spontaneous
  Country: US (occurrence: US)
  Receive Date: 20160427
  Receipt Date: 20160427
  Transmission Date: 20160815
  Serious: No
  Sender: FDA-Public Use
  Company Number: US-ASTRAZENECA-2016SE30719

PATIENT
  Age: 818 Month
  Sex: Male
  Weight: 122.5 kg

DRUGS (15)
  1. NITROGLYCERIN. [Concomitant]
     Active Substance: NITROGLYCERIN
     Indication: HEART RATE IRREGULAR
     Route: 060
  2. MULTIVITAMIN [Concomitant]
     Active Substance: VITAMINS
     Indication: SUPPLEMENTATION THERAPY
     Route: 048
  3. ASPIRIN. [Concomitant]
     Active Substance: ASPIRIN
     Indication: CARDIAC DISORDER
     Route: 048
     Dates: end: 20160302
  4. SAW PALMETTO [Concomitant]
     Active Substance: SAW PALMETTO
     Indication: PROSTATIC DISORDER
     Route: 048
  5. NITROGLYCERIN. [Concomitant]
     Active Substance: NITROGLYCERIN
     Indication: DYSPNOEA
     Route: 060
  6. NITROGLYCERIN. [Concomitant]
     Active Substance: NITROGLYCERIN
     Indication: MYOCARDIAL INFARCTION
     Route: 060
  7. BRILINTA [Suspect]
     Active Substance: TICAGRELOR
     Indication: PROPHYLAXIS
     Route: 048
     Dates: start: 20160302
  8. CARVEDILOL. [Concomitant]
     Active Substance: CARVEDILOL
     Indication: BLOOD PRESSURE ABNORMAL
     Route: 048
     Dates: end: 201603
  9. VITAMIN B12 [Concomitant]
     Active Substance: CYANOCOBALAMIN
     Indication: ASTHENIA
     Route: 048
  10. AZOR [Concomitant]
     Active Substance: AMLODIPINE BESYLATE\OLMESARTAN MEDOXOMIL
     Indication: HYPERTENSION
     Route: 048
  11. GLIMEPIRIDE. [Concomitant]
     Active Substance: GLIMEPIRIDE
     Indication: DIABETES MELLITUS
     Route: 048
  12. TRESIBA [Concomitant]
     Active Substance: INSULIN DEGLUDEC
     Indication: DIABETES MELLITUS
     Route: 058
  13. OMEGA 3 FISH OIL [Concomitant]
     Active Substance: FISH OIL\OMEGA-3 FATTY ACIDS
     Route: 048
  14. ATORVASTATIN [Concomitant]
     Active Substance: ATORVASTATIN
     Indication: BLOOD CHOLESTEROL ABNORMAL
     Route: 048
     Dates: end: 201603
  15. SAW PALMETTO [Concomitant]
     Active Substance: SAW PALMETTO
     Indication: URINARY TRACT DISORDER
     Route: 048

REACTIONS (8)
  - Extrasystoles [Unknown]
  - Malaise [Unknown]
  - Dyspnoea [Unknown]
  - Asthenia [Unknown]
  - Diabetes mellitus inadequate control [Unknown]
  - Supraventricular extrasystoles [Unknown]
  - Middle insomnia [Unknown]
  - Dyspnoea [Unknown]

NARRATIVE: CASE EVENT DATE: 201603
